FAERS Safety Report 12477144 (Version 2)
Quarter: 2016Q2

REPORT INFORMATION
  Report Type: Spontaneous
  Country: US (occurrence: US)
  Receive Date: 20160617
  Receipt Date: 20160629
  Transmission Date: 20160815
  Serious: Yes (Hospitalization, Other)
  Sender: FDA-Public Use
  Company Number: US-TEVA-669109USA

PATIENT
  Age: 69 Year
  Sex: Female

DRUGS (5)
  1. CEFEPIME [Concomitant]
     Active Substance: CEFEPIME HYDROCHLORIDE
     Indication: PNEUMONIA
  2. LINEZOLID. [Concomitant]
     Active Substance: LINEZOLID
     Indication: PNEUMONIA
  3. LINEZOLID. [Concomitant]
     Active Substance: LINEZOLID
     Indication: BREAST CELLULITIS
  4. ACICLOVIR [Suspect]
     Active Substance: ACYCLOVIR
     Route: 065
  5. CEFEPIME [Concomitant]
     Active Substance: CEFEPIME HYDROCHLORIDE
     Indication: BREAST CELLULITIS

REACTIONS (1)
  - Neurotoxicity [Recovered/Resolved]
